FAERS Safety Report 8801389 (Version 1)
Quarter: 2012Q4

REPORT INFORMATION
  Report Type: 
  Country: CH (occurrence: CH)
  Receive Date: 20120921
  Receipt Date: 20120921
  Transmission Date: 20130627
  Serious: Yes (Hospitalization)
  Sender: FDA-Public Use
  Company Number: CH-BAYER-2012-097312

PATIENT
  Age: 61 Year
  Sex: Male
  Weight: 90 kg

DRUGS (18)
  1. ASPIRIN CARDIO [Suspect]
     Dosage: 100 mg, QD
     Route: 048
  2. LITHIUM SULFATE [Interacting]
     Dosage: 660 mg, BID
     Route: 048
     Dates: end: 20120706
  3. IBUPROFEN [Interacting]
     Dosage: 600 mg, TID
     Route: 048
     Dates: end: 20120706
  4. LYRICA [Suspect]
     Dosage: 75 mg, TID
  5. OXYCONTIN [Suspect]
     Dosage: 10 mg, BID
     Route: 048
  6. REMERON [Suspect]
     Dosage: 45 mg, QD
     Route: 048
  7. TEMESTA [Suspect]
     Dosage: 1 mg, QD
     Route: 048
  8. ATACAND PLUS [Suspect]
     Dosage: 0.5 DF, QD (28.5 mg/DF)
     Route: 048
  9. CYMBALTA [Suspect]
     Dosage: 60 mg, BID
     Route: 048
  10. BECOZYM [Concomitant]
     Route: 048
  11. CEFUROXIM [Concomitant]
     Dosage: 500 mg, UNK
     Route: 048
  12. DAFALGAN [Concomitant]
     Dosage: 1 g, UNK
     Route: 048
  13. DULCOLAX [BISACODYL] [Concomitant]
     Dosage: 5 mg, UNK
     Route: 048
  14. ELTROXIN [Concomitant]
     Dosage: 50 ?g, UNK
     Route: 048
  15. KETESSE [Concomitant]
     Dosage: 25 mg, BID
     Route: 048
  16. MAGNESIOCARD [Concomitant]
     Dosage: 5 mg, BID
     Route: 048
  17. PANTOZOL [Concomitant]
     Dosage: 20 mg, BID
     Route: 048
  18. VALERIANA OFFICINALIS EXTRACT [Concomitant]
     Dosage: 500 mg, QD
     Route: 048

REACTIONS (5)
  - Drug level increased [Recovered/Resolved]
  - Somnolence [Recovered/Resolved]
  - Muscular weakness [Recovered/Resolved]
  - Renal impairment [Recovered/Resolved]
  - Ataxia [Recovered/Resolved]
